FAERS Safety Report 25996210 (Version 1)
Quarter: 2025Q4

REPORT INFORMATION
  Report Type: Spontaneous
  Country: EU (occurrence: EU)
  Receive Date: 20251104
  Receipt Date: 20251104
  Transmission Date: 20260117
  Serious: Yes (Disabling)
  Sender: OTSUKA
  Company Number: EU-MMM-Otsuka-CSAHBUWR

PATIENT
  Age: 32 Year
  Sex: Male

DRUGS (2)
  1. ABILIFY MAINTENA [Suspect]
     Active Substance: ARIPIPRAZOLE
     Indication: Product used for unknown indication
     Dosage: UNK
     Route: 065
  2. LEXAPRO [Suspect]
     Active Substance: ESCITALOPRAM OXALATE
     Indication: Product used for unknown indication
     Dosage: UNK, DAILY
     Route: 065
     Dates: start: 20250301, end: 20250701

REACTIONS (3)
  - Physical disability [Unknown]
  - Mental impairment [Unknown]
  - Sexual dysfunction [Not Recovered/Not Resolved]
